FAERS Safety Report 15374645 (Version 1)
Quarter: 2018Q3

REPORT INFORMATION
  Report Type: Spontaneous
  Country: US (occurrence: US)
  Receive Date: 20180906
  Receipt Date: 20180906
  Transmission Date: 20181010
  Serious: No
  Sender: FDA-Public Use
  Company Number: None

PATIENT
  Age: 50 Year
  Sex: Female
  Weight: 55.8 kg

DRUGS (8)
  1. LEVOTHYROXIN/LIOTHYRONIN [Suspect]
     Active Substance: LEVOTHYROXINE\LIOTHYRONINE
     Indication: THYROID DISORDER
     Dosage: ?          QUANTITY:30 TABLET(S);?
     Route: 048
     Dates: start: 20180716, end: 20180723
  2. PROGESTERONE. [Concomitant]
     Active Substance: PROGESTERONE
  3. POTASSIUM [Concomitant]
     Active Substance: POTASSIUM
  4. ARMOUR THYROID [Concomitant]
     Active Substance: THYROID, PORCINE
  5. MILK THISTLE [Concomitant]
     Active Substance: DIETARY SUPPLEMENT\HERBALS\MILK THISTLE
  6. TYLENOL [Concomitant]
     Active Substance: ACETAMINOPHEN
  7. VITAMIN C [Concomitant]
     Active Substance: ASCORBIC ACID
  8. IRON [Concomitant]
     Active Substance: IRON

REACTIONS (8)
  - Irritability [None]
  - Fatigue [None]
  - Headache [None]
  - Abdominal pain upper [None]
  - Insomnia [None]
  - Wrong drug administered [None]
  - Weight decreased [None]
  - Drug dispensing error [None]

NARRATIVE: CASE EVENT DATE: 20180716
